FAERS Safety Report 5749615-9 (Version None)
Quarter: 2008Q2

REPORT INFORMATION
  Report Type: 
  Country: None (occurrence: None)
  Receive Date: 20080522
  Receipt Date: 20080522
  Transmission Date: 20081010
  Serious: Yes (Death)
  Sender: FDA-Public Use
  Company Number: None

PATIENT
  Age: 39 Year
  Sex: Female
  Weight: 128.8216 kg

DRUGS (4)
  1. ELOXATIN [Suspect]
     Indication: COLON CANCER
     Dosage: 170MG ONCE IV DRIP
     Route: 041
     Dates: start: 20080311, end: 20080311
  2. AVASTIN [Suspect]
     Indication: COLON CANCER
     Dosage: 645MG ONCE IV DRIP
     Route: 041
     Dates: start: 20080311, end: 20080311
  3. LEUCOVORIN CALCIUM [Concomitant]
  4. FLUOROURACIL [Concomitant]

REACTIONS (1)
  - DEATH [None]
